FAERS Safety Report 18339506 (Version 1)
Quarter: 2020Q4

REPORT INFORMATION
  Report Type: Spontaneous
  Country: US (occurrence: US)
  Receive Date: 20201002
  Receipt Date: 20201002
  Transmission Date: 20210113
  Serious: No
  Sender: FDA-Public Use
  Company Number: US-PERRIGO-20US012687

PATIENT
  Age: 51 Year
  Sex: Female
  Weight: 68.03 kg

DRUGS (2)
  1. NICOTINE POLACRILEX [Suspect]
     Active Substance: NICOTINE
     Indication: SMOKING CESSATION THERAPY
     Dosage: 2 MG, QD, PRN
     Route: 002
     Dates: start: 20200817, end: 20200831
  2. NICOTINE POLACRILEX [Suspect]
     Active Substance: NICOTINE
     Dosage: 4 MG, SINGLE
     Route: 002
     Dates: start: 202008, end: 202008

REACTIONS (4)
  - Nausea [Recovered/Resolved]
  - Incorrect dose administered [Recovered/Resolved]
  - Headache [Recovered/Resolved]
  - Rash pruritic [Recovered/Resolved]

NARRATIVE: CASE EVENT DATE: 202008
